FAERS Safety Report 6631766-8 (Version None)
Quarter: 2010Q1

REPORT INFORMATION
  Report Type: 
  Country: None (occurrence: None)
  Receive Date: 20100312
  Receipt Date: 20100305
  Transmission Date: 20100710
  Serious: Yes (Hospitalization, Other)
  Sender: FDA-Public Use
  Company Number: CH-BAYER-201018405GPV

PATIENT
  Age: 61 Year
  Sex: Female
  Weight: 87 kg

DRUGS (6)
  1. SORAFENIB [Suspect]
     Indication: DRUG USE FOR UNKNOWN INDICATION
     Dosage: TOTAL DAILY DOSE: 800 MG
     Route: 048
     Dates: start: 20100106, end: 20100301
  2. TEMOZOLOMIDE [Suspect]
     Indication: DRUG USE FOR UNKNOWN INDICATION
     Route: 048
     Dates: start: 20100203, end: 20100207
  3. PRAVASTATIN [Concomitant]
     Route: 048
  4. GLUCOZIDE [Concomitant]
     Route: 048
  5. PIOGLITAZONE [Concomitant]
     Route: 048
  6. ENALAPRIL MALEATE [Concomitant]
     Route: 048

REACTIONS (2)
  - CONVULSION [None]
  - THROMBOCYTOPENIA [None]
